FAERS Safety Report 18132413 (Version 2)
Quarter: 2020Q4

REPORT INFORMATION
  Report Type: Other
  Country: US (occurrence: US)
  Receive Date: 20200811
  Receipt Date: 20201009
  Transmission Date: 20210113
  Serious: Yes (Death)
  Sender: FDA-Public Use
  Company Number: US-INTERCEPT-PM2020001643

PATIENT
  Age: 80 Year
  Sex: Male

DRUGS (4)
  1. VITAMIN C [Concomitant]
     Active Substance: ASCORBIC ACID
  2. ZORTRESS [Concomitant]
     Active Substance: EVEROLIMUS
  3. OCALIVA [Suspect]
     Active Substance: OBETICHOLIC ACID
     Indication: PRIMARY BILIARY CHOLANGITIS
     Dosage: 5 MG, QD
     Route: 048
     Dates: start: 20190916
  4. VITAMIN D3 [Concomitant]
     Active Substance: CHOLECALCIFEROL

REACTIONS (1)
  - Death [Fatal]

NARRATIVE: CASE EVENT DATE: 20200611
